FAERS Safety Report 4957823-X (Version None)
Quarter: 2006Q1

REPORT INFORMATION
  Report Type: 
  Country: None (occurrence: None)
  Receive Date: 20060324
  Receipt Date: 20060314
  Transmission Date: 20060701
  Serious: Yes (Hospitalization)
  Sender: FDA-Public Use
  Company Number: 2006035607

PATIENT
  Age: 35 Year
  Sex: Female

DRUGS (1)
  1. PREDNISONE TAB [Suspect]
     Indication: VASCULITIS

REACTIONS (4)
  - DISEASE PROGRESSION [None]
  - POLYARTERITIS NODOSA [None]
  - SPLENIC ARTERY ANEURYSM [None]
  - VASCULITIS [None]
